FAERS Safety Report 5751301-6 (Version None)
Quarter: 2008Q2

REPORT INFORMATION
  Report Type: 
  Country: None (occurrence: None)
  Receive Date: 20080528
  Receipt Date: 20080519
  Transmission Date: 20081010
  Serious: Yes (Other)
  Sender: FDA-Public Use
  Company Number: AT-AMGEN-UK278190

PATIENT
  Sex: Male

DRUGS (9)
  1. VECTIBIX [Suspect]
     Indication: COLORECTAL CANCER
     Dates: start: 20080416
  2. FLUOROURACIL [Concomitant]
  3. LEUCOVORIN CALCIUM [Concomitant]
  4. SEDACORON [Concomitant]
  5. FRAXIPARIN [Concomitant]
  6. PANTOPRAZOLE SODIUM [Concomitant]
  7. MINOCYCLINE HYDROCHLORIDE [Concomitant]
     Route: 048
     Dates: start: 20080505
  8. BENZYDAMINE HYDROCHLORIDE [Concomitant]
     Route: 048
     Dates: start: 20080505
  9. IRINOTECAN HCL [Concomitant]
     Route: 065

REACTIONS (2)
  - APHTHOUS STOMATITIS [None]
  - MUCOSAL INFLAMMATION [None]
